FAERS Safety Report 4515607-0 (Version None)
Quarter: 2004Q4

REPORT INFORMATION
  Report Type: 
  Country: None (occurrence: None)
  Receive Date: 20041126
  Receipt Date: 20041116
  Transmission Date: 20050328
  Serious: Yes (Other)
  Sender: FDA-Public Use
  Company Number: 2004093772

PATIENT
  Sex: Male

DRUGS (3)
  1. FRAGMIN [Suspect]
     Indication: THROMBOSIS
     Dosage: 10000 I.U. (5000 I.U., BID DAILY), INTRAVENOUS
     Route: 042
  2. NEVIRAPINE (NEVIRAPINE) [Concomitant]
  3. ZIDOVUDINE  W/LAMIVUDINE (LAMIVUDINE, ZIDOVUDINE) [Concomitant]

REACTIONS (2)
  - DISEASE RECURRENCE [None]
  - THROMBOSIS [None]
